FAERS Safety Report 11462888 (Version 1)
Quarter: 2015Q3

REPORT INFORMATION
  Report Type: Spontaneous
  Country: US (occurrence: US)
  Receive Date: 20150831
  Receipt Date: 20150831
  Transmission Date: 20151125
  Serious: No
  Sender: FDA-Public Use
  Company Number: US-ELI_LILLY_AND_COMPANY-US201102001857

PATIENT
  Sex: Female
  Weight: 114.29 kg

DRUGS (6)
  1. NEXIUM /USA/ [Concomitant]
     Indication: GASTROOESOPHAGEAL REFLUX DISEASE
     Dosage: 40 MG, 2/D
     Route: 048
  2. SYNTHROID [Concomitant]
     Active Substance: LEVOTHYROXINE SODIUM
     Indication: THYROID DISORDER
     Dosage: 50 MG, DAILY (1/D)
     Route: 048
  3. ESTRACE [Concomitant]
     Active Substance: ESTRADIOL
     Indication: DEPRESSED MOOD
     Dosage: 1 MG, DAILY (1/D)
     Route: 048
  4. EFFEXOR /USA/ [Concomitant]
     Indication: DEPRESSION
     Dosage: 300 MG, DAILY (1/D)
     Route: 048
  5. CYMBALTA [Suspect]
     Active Substance: DULOXETINE HYDROCHLORIDE
     Dosage: UNK, DAILY (1/D)
     Route: 065
  6. PRISTIQ EXTENDED RELEASE [Concomitant]
     Active Substance: DESVENLAFAXINE SUCCINATE
     Indication: ANTIDEPRESSANT THERAPY
     Dosage: 50 MG, DAILY (1/D)
     Route: 048

REACTIONS (6)
  - Depression [Unknown]
  - Musculoskeletal pain [Recovering/Resolving]
  - Decreased activity [Unknown]
  - Rotator cuff syndrome [Recovering/Resolving]
  - Accident at work [Recovered/Resolved]
  - Joint injury [Recovering/Resolving]
